FAERS Safety Report 6086789-7 (Version None)
Quarter: 2009Q1

REPORT INFORMATION
  Report Type: 
  Country: None (occurrence: None)
  Receive Date: 20090213
  Receipt Date: 20090131
  Transmission Date: 20090719
  Serious: Yes (Other)
  Sender: FDA-Public Use
  Company Number: CHPA2009US02653

PATIENT
  Age: 71 Year
  Sex: Female
  Weight: 72.6 kg

DRUGS (3)
  1. MAALOX ANTICID/ANTIGAS MAX LIQ (NCH) (MAGNESIUM HYDROXIDE, ALUMINIUM H [Suspect]
  2. MAALOX ANTIACID/ANTIGAS MAX STR MULTI SYMPTOM (NCH) (MAGNESIUM HYDROXI [Suspect]
     Indication: FLATULENCE
  3. MAALOX MS TOTAL STOMACH RELIEF (NCH) (BISMUTH SUBSALICYLATE) SUSPENSIO [Suspect]
     Indication: FLATULENCE
     Dosage: ORAL
     Route: 048

REACTIONS (5)
  - FAECES DISCOLOURED [None]
  - HYPERTENSION [None]
  - INTENTIONAL DRUG MISUSE [None]
  - PRODUCT QUALITY ISSUE [None]
  - VOMITING [None]
